FAERS Safety Report 23048017 (Version 1)
Quarter: 2023Q4

REPORT INFORMATION
  Report Type: Report from Study
  Country: US (occurrence: US)
  Receive Date: 20231010
  Receipt Date: 20231010
  Transmission Date: 20240110
  Serious: No
  Sender: FDA-Public Use
  Company Number: US-BIOVITRUM-2023-US-015626

PATIENT
  Age: 65 Year
  Sex: Female

DRUGS (2)
  1. DOPTELET [Suspect]
     Active Substance: AVATROMBOPAG MALEATE
     Indication: Product used for unknown indication
     Dosage: QD
     Route: 048
     Dates: start: 20230312
  2. DOPTELET [Suspect]
     Active Substance: AVATROMBOPAG MALEATE

REACTIONS (2)
  - Epistaxis [Unknown]
  - Accidental overdose [Unknown]
